FAERS Safety Report 25572403 (Version 2)
Quarter: 2025Q3

REPORT INFORMATION
  Report Type: Report from Study
  Country: US (occurrence: US)
  Receive Date: 20250717
  Receipt Date: 20250811
  Transmission Date: 20251021
  Serious: Yes (Hospitalization)
  Sender: PFIZER
  Company Number: US-PFIZER INC-202500115133

PATIENT
  Age: 37 Year
  Sex: Female
  Weight: 80.685 kg

DRUGS (4)
  1. TUKYSA [Suspect]
     Active Substance: TUCATINIB
     Indication: Breast cancer female
     Dosage: 300MG BY MOUTH TWICE DAILY
     Route: 048
     Dates: start: 20250415
  2. TUKYSA [Suspect]
     Active Substance: TUCATINIB
     Dosage: 300MG BY MOUTH TWICE DAILY
     Route: 048
     Dates: start: 20250415
  3. KEPPRA [Concomitant]
     Active Substance: LEVETIRACETAM
  4. MEMANTINE [Concomitant]
     Active Substance: MEMANTINE
     Dosage: 10MG AM, 10MG PM

REACTIONS (2)
  - Loss of consciousness [Unknown]
  - Seizure [Unknown]

NARRATIVE: CASE EVENT DATE: 20250101
